FAERS Safety Report 25745182 (Version 1)
Quarter: 2025Q3

REPORT INFORMATION
  Report Type: Spontaneous
  Country: JP (occurrence: JP)
  Receive Date: 20250901
  Receipt Date: 20250901
  Transmission Date: 20251020
  Serious: Yes (Other)
  Sender: MERCK SHARP & DOHME LLC
  Company Number: JP-009507513-2323956

PATIENT
  Age: 89 Year
  Sex: Male

DRUGS (1)
  1. KEYTRUDA [Suspect]
     Active Substance: PEMBROLIZUMAB
     Indication: Gingival cancer
     Route: 065

REACTIONS (4)
  - Osteonecrosis of jaw [Unknown]
  - Malaise [Unknown]
  - Decreased appetite [Unknown]
  - Malignant neoplasm progression [Recovering/Resolving]
